FAERS Safety Report 20142414 (Version 1)
Quarter: 2021Q4

REPORT INFORMATION
  Report Type: Spontaneous
  Country: US (occurrence: US)
  Receive Date: 20211202
  Receipt Date: 20211202
  Transmission Date: 20220303
  Serious: Yes (Other)
  Sender: FDA-Public Use
  Company Number: US-TEVA-2021-US-1981653

PATIENT
  Sex: Female

DRUGS (6)
  1. PROAIR HFA [Suspect]
     Active Substance: ALBUTEROL SULFATE
     Route: 065
  2. PROAIR HFA [Suspect]
     Active Substance: ALBUTEROL SULFATE
  3. PROAIR RESPICLICK [Suspect]
     Active Substance: ALBUTEROL SULFATE
     Route: 065
  4. PROAIR RESPICLICK [Suspect]
     Active Substance: ALBUTEROL SULFATE
  5. ALBUTEROL SULFATE [Suspect]
     Active Substance: ALBUTEROL SULFATE
     Route: 065
  6. VENTOLIN [Suspect]
     Active Substance: ALBUTEROL SULFATE
     Route: 065

REACTIONS (7)
  - Cataract [Unknown]
  - Glaucoma [Unknown]
  - Diabetes mellitus [Unknown]
  - Blindness [Unknown]
  - Fluid retention [Unknown]
  - Asthma [Unknown]
  - Illness [Unknown]
